FAERS Safety Report 7623840-4 (Version None)
Quarter: 2011Q3

REPORT INFORMATION
  Report Type: 
  Country: None (occurrence: None)
  Receive Date: 20110720
  Receipt Date: 20110715
  Transmission Date: 20111222
  Serious: No
  Sender: FDA-Public Use
  Company Number: US-PFIZER INC-2011160164

PATIENT
  Sex: Male
  Weight: 68 kg

DRUGS (2)
  1. CHANTIX [Suspect]
     Indication: SMOKING CESSATION THERAPY
     Dosage: 0.5 MG, 2X/DAY
     Route: 048
     Dates: start: 20110601, end: 20110601
  2. CHANTIX [Suspect]
     Dosage: 1 MG, 2X/DAY
     Route: 048
     Dates: start: 20110701

REACTIONS (4)
  - ABNORMAL DREAMS [None]
  - EJACULATION DISORDER [None]
  - LOSS OF LIBIDO [None]
  - ERECTILE DYSFUNCTION [None]
